FAERS Safety Report 17467919 (Version 1)
Quarter: 2020Q1

REPORT INFORMATION
  Report Type: Spontaneous
  Country: US (occurrence: US)
  Receive Date: 20200227
  Receipt Date: 20200227
  Transmission Date: 20200409
  Serious: Yes (Other)
  Sender: FDA-Public Use
  Company Number: US-PFIZER INC-2020087905

PATIENT
  Age: 62 Year
  Sex: Female

DRUGS (1)
  1. IBRANCE [Suspect]
     Active Substance: PALBOCICLIB
     Indication: BREAST CANCER FEMALE
     Dosage: 100 MG, CYCLIC (14 DAYS OF A 21 DAY CYCLE),(TAKING HER IBRANCE IN THE EVENINGS)
     Route: 048

REACTIONS (3)
  - Headache [Unknown]
  - Neutropenia [Unknown]
  - Neutrophil count decreased [Recovering/Resolving]
